FAERS Safety Report 4495713-X (Version None)
Quarter: 2004Q4

REPORT INFORMATION
  Report Type: 
  Country: None (occurrence: None)
  Receive Date: 20041108
  Receipt Date: 20041025
  Transmission Date: 20050328
  Serious: Yes (Hospitalization)
  Sender: FDA-Public Use
  Company Number: PHHO2004FI15057

PATIENT
  Age: 11 Year
  Sex: Male
  Weight: 44 kg

DRUGS (1)
  1. AREDIA T25893+SOLINF [Suspect]
     Indication: OSTEOGENESIS IMPERFECTA
     Dosage: 3 MG/KG, QMO
     Route: 042
     Dates: start: 20041018

REACTIONS (3)
  - C-REACTIVE PROTEIN INCREASED [None]
  - PHLEBITIS [None]
  - PYREXIA [None]
